FAERS Safety Report 6979461-X (Version None)
Quarter: 2010Q3

REPORT INFORMATION
  Report Type: 
  Country: None (occurrence: None)
  Receive Date: 20100908
  Receipt Date: 20100824
  Transmission Date: 20110219
  Serious: Yes (Death)
  Sender: FDA-Public Use
  Company Number: FKO201000354

PATIENT
  Age: 51 Year
  Sex: Male

DRUGS (3)
  1. CISPLATIN [Suspect]
     Indication: NON-SMALL CELL LUNG CANCER
  2. GEMCITABINE [Suspect]
     Indication: NON-SMALL CELL LUNG CANCER
  3. ERLOTINIB HYDROCHLORIDE [Concomitant]

REACTIONS (2)
  - HAEMATOTOXICITY [None]
  - HYPERSENSITIVITY [None]
